FAERS Safety Report 4824779-X (Version None)
Quarter: 2005Q4

REPORT INFORMATION
  Report Type: 
  Country: None (occurrence: None)
  Receive Date: 20051014
  Receipt Date: 20050811
  Transmission Date: 20060501
  Serious: No
  Sender: FDA-Public Use
  Company Number: 2005SP002319

PATIENT
  Age: 37 Year
  Sex: Female
  Weight: 66.2252 kg

DRUGS (2)
  1. LUNESTA [Suspect]
     Dosage: 2 MG;HS;ORAL   3 MG;HS;ORAL
     Route: 048
     Dates: start: 20050601, end: 20050701
  2. LUNESTA [Suspect]
     Dosage: 2 MG;HS;ORAL   3 MG;HS;ORAL
     Route: 048
     Dates: start: 20050701

REACTIONS (1)
  - DRUG EFFECT DECREASED [None]
